FAERS Safety Report 7597868-7 (Version None)
Quarter: 2011Q3

REPORT INFORMATION
  Report Type: 
  Country: None (occurrence: None)
  Receive Date: 20110708
  Receipt Date: 20110706
  Transmission Date: 20111222
  Serious: Yes (Hospitalization, Disabling)
  Sender: FDA-Public Use
  Company Number: US-MERCK-1104USA02309

PATIENT
  Age: 34 Year
  Sex: Female

DRUGS (2)
  1. SINGULAIR [Suspect]
     Indication: ASTHMA
     Route: 048
     Dates: start: 20060101, end: 20101001
  2. SINGULAIR [Suspect]
     Indication: HYPERSENSITIVITY
     Route: 048
     Dates: start: 20060101, end: 20101001

REACTIONS (7)
  - GALLBLADDER DISORDER [None]
  - AGGRESSION [None]
  - HALLUCINATION, AUDITORY [None]
  - MARITAL PROBLEM [None]
  - SUICIDAL IDEATION [None]
  - SUICIDAL BEHAVIOUR [None]
  - ABDOMINAL PAIN [None]
